FAERS Safety Report 14081110 (Version 1)
Quarter: 2017Q4

REPORT INFORMATION
  Report Type: Spontaneous
  Country: US (occurrence: US)
  Receive Date: 20171012
  Receipt Date: 20171012
  Transmission Date: 20180321
  Serious: Yes (Hospitalization)
  Sender: FDA-Public Use
  Company Number: None

PATIENT
  Age: 35 Year
  Sex: Male

DRUGS (3)
  1. GABAPENTIN. [Concomitant]
     Active Substance: GABAPENTIN
  2. MORPHINE [Concomitant]
     Active Substance: MORPHINE
  3. TESTOSTERONE. [Suspect]
     Active Substance: TESTOSTERONE
     Dosage: ?          OTHER FREQUENCY:EVERY 2 WKS;?INTRAMUSCULAR
     Route: 030

REACTIONS (1)
  - Hospitalisation [None]
